FAERS Safety Report 9292274 (Version 1)
Quarter: 2013Q2

REPORT INFORMATION
  Report Type: Spontaneous
  Country: FR (occurrence: FR)
  Receive Date: 20130516
  Receipt Date: 20130516
  Transmission Date: 20140414
  Serious: Yes (Hospitalization)
  Sender: FDA-Public Use
  Company Number: FR-NOVOPROD-377729

PATIENT
  Age: 46 Year
  Sex: Female

DRUGS (11)
  1. VICTOZA [Suspect]
     Indication: INSULIN-REQUIRING TYPE 2 DIABETES MELLITUS
     Dosage: 1.8 MG, QD
     Route: 058
  2. VICTOZA [Suspect]
     Dosage: 18 MG, QD
     Route: 058
     Dates: start: 20130422, end: 20130422
  3. INSULINE /01223401/ [Suspect]
     Indication: INSULIN-REQUIRING TYPE 2 DIABETES MELLITUS
     Dosage: 90 IU, QD
     Route: 058
     Dates: start: 20130422, end: 20130422
  4. DEPAMIDE [Concomitant]
  5. ZOLPIDEM [Concomitant]
  6. ALPRAZOLAM [Concomitant]
  7. PAROXETINE [Concomitant]
  8. ALDACTONE                          /00006201/ [Concomitant]
  9. LANTUS [Concomitant]
  10. REPAGLINIDE [Concomitant]
  11. STAGID [Concomitant]

REACTIONS (5)
  - Suicide attempt [Unknown]
  - Intentional overdose [Unknown]
  - Hypoglycaemia [Unknown]
  - Toxicity to various agents [None]
  - Depression [None]
